FAERS Safety Report 6593794-0 (Version None)
Quarter: 2010Q1

REPORT INFORMATION
  Report Type: 
  Country: None (occurrence: None)
  Receive Date: 20100222
  Receipt Date: 20100211
  Transmission Date: 20100710
  Serious: Yes (Other)
  Sender: FDA-Public Use
  Company Number: US-PFIZER INC-2010020187

PATIENT
  Sex: Male
  Weight: 85.714 kg

DRUGS (2)
  1. LIPITOR [Suspect]
     Indication: CARDIAC OPERATION
     Dosage: 80 MG, 1X/DAY
     Route: 048
     Dates: start: 19970101
  2. TOPROL-XL [Concomitant]
     Indication: BLOOD PRESSURE INCREASED
     Dosage: 50 MG, UNK

REACTIONS (3)
  - ABDOMINAL DISCOMFORT [None]
  - ASTHENIA [None]
  - MYOCARDIAL INFARCTION [None]
